FAERS Safety Report 5766764-X (Version None)
Quarter: 2008Q2

REPORT INFORMATION
  Report Type: 
  Country: None (occurrence: None)
  Receive Date: 20080612
  Receipt Date: 20080530
  Transmission Date: 20081010
  Serious: Yes (Death)
  Sender: FDA-Public Use
  Company Number: ES-ROCHE-569272

PATIENT
  Age: 73 Year

DRUGS (9)
  1. TRETINOIN [Suspect]
     Dosage: INDUCTION THERAPY: MAX OF 90 DAYS PATIENTS YOUNGER THAN 20 RECEIVED 25 MG/M2/DAY
     Route: 048
  2. TRETINOIN [Suspect]
     Dosage: CONSOLIDATION THERAPY: GIVEN ON DAYS 1-15, MONTHLY
     Route: 048
  3. TRETINOIN [Suspect]
     Dosage: MAINTENANCE THERAPY: GIVEN FOR 15 DAYS EVERY 3 MONTHS
     Route: 048
  4. IDARUBICIN HCL [Suspect]
     Dosage: INDUCTION THERAPY: GIVEN ON DAYS 2, 4, 6 AND 8
     Route: 040
  5. IDARUBICIN HCL [Suspect]
     Dosage: CONSOLIDATION THERAPY: FIRST COURSE, GIVEN ON DAYS 1-4 OF MONTHLY COURSE
     Route: 040
  6. IDARUBICIN HCL [Suspect]
     Dosage: CONSOLIDATION THERAPY: THIRD COURSE, GIVEN ON DAY 1 OF MONTHLY COURSE
     Route: 040
  7. MITOXANTRONE [Suspect]
     Dosage: CONSOLIDATION THERAPY: SECOND COURSE, GIVEN ON DAYS 1-5 OF MONTHLY COURSE
     Route: 042
  8. MERCAPTOPURINE [Suspect]
     Dosage: MAINTENANCE THERAPY: GIVEN FOR 15 DAYS EVERY 3 MONTHS
     Route: 048
  9. METHOTREXATE [Suspect]
     Dosage: MAINTENANCE THERAPY: 15 MG/M2/WEEK, GIVEN FOR 15 DAYS OF EVERY 3 MONTHS
     Route: 030

REACTIONS (1)
  - DEATH [None]
